FAERS Safety Report 6826520-8 (Version None)
Quarter: 2010Q3

REPORT INFORMATION
  Report Type: 
  Country: None (occurrence: None)
  Receive Date: 20100709
  Receipt Date: 20100628
  Transmission Date: 20110219
  Serious: Yes (Other)
  Sender: FDA-Public Use
  Company Number: PHHY2010BR43114

PATIENT
  Sex: Female

DRUGS (4)
  1. EXELON [Suspect]
     Indication: DEMENTIA ALZHEIMER'S TYPE
     Dosage: 9 MG/5 CM, UNK
     Route: 062
  2. EXELON [Suspect]
     Dosage: 18 MG/10 CM, UNK
     Route: 062
  3. EXELON [Suspect]
     Dosage: 9 MG/5 CM, UNK
     Route: 062
  4. CYMBALTA [Concomitant]
     Dosage: 60 MG, UNK

REACTIONS (3)
  - DIZZINESS [None]
  - OVERDOSE [None]
  - PETIT MAL EPILEPSY [None]
